FAERS Safety Report 5752130-X (Version None)
Quarter: 2008Q2

REPORT INFORMATION
  Report Type: 
  Country: None (occurrence: None)
  Receive Date: 20080528
  Receipt Date: 20080517
  Transmission Date: 20081010
  Serious: No
  Sender: FDA-Public Use
  Company Number: APP200800417

PATIENT
  Age: 44 Year
  Weight: 91 kg

DRUGS (2)
  1. HEPARIN SODIUM INJECTION [Suspect]
     Indication: HAEMODIALYSIS
     Dosage: ONCE, INTRAVENOUS
     Route: 042
     Dates: start: 20080517, end: 20080517
  2. COMBIVENT (BREVA) [Concomitant]

REACTIONS (3)
  - DYSPNOEA [None]
  - HYPOTENSION [None]
  - URTICARIA [None]
